FAERS Safety Report 9140411 (Version 2)
Quarter: 2013Q2

REPORT INFORMATION
  Report Type: Spontaneous
  Country: US (occurrence: US)
  Receive Date: 20130305
  Receipt Date: 20130429
  Transmission Date: 20140414
  Serious: No
  Sender: FDA-Public Use
  Company Number: US-PFIZER INC-2013075092

PATIENT
  Age: 85 Year
  Sex: Female
  Weight: 67.57 kg

DRUGS (5)
  1. XANAX [Suspect]
     Indication: NERVOUSNESS
     Dosage: 0.5 MG, UNK
  2. XANAX [Suspect]
     Indication: SLEEP DISORDER
     Dosage: 0.25 MG, UNK
  3. XANAX [Suspect]
     Dosage: 0.5 MG, UNK
  4. COZAAR [Concomitant]
     Indication: HYPERTENSION
     Dosage: 35 MG, DAILY
  5. PLAVIX [Concomitant]
     Indication: CARDIAC DISORDER
     Dosage: 75 MG, DAILY

REACTIONS (6)
  - Drug ineffective [Unknown]
  - Malaise [Recovered/Resolved]
  - Nausea [Recovered/Resolved]
  - Walking aid user [Recovered/Resolved]
  - Balance disorder [Recovered/Resolved]
  - Pain [Recovered/Resolved]
